FAERS Safety Report 5196460-1 (Version None)
Quarter: 2006Q4

REPORT INFORMATION
  Report Type: 
  Country: None (occurrence: None)
  Receive Date: 20061227
  Receipt Date: 20061212
  Transmission Date: 20070319
  Serious: Yes (Other)
  Sender: FDA-Public Use
  Company Number: 151016ISR

PATIENT
  Age: 44 Year
  Sex: Female

DRUGS (1)
  1. SIMVASTATIN [Suspect]
     Indication: BLOOD CHOLESTEROL INCREASED
     Dosage: (10 MG)
     Route: 048
     Dates: start: 20060508

REACTIONS (1)
  - HYPERGLYCAEMIA [None]
